FAERS Safety Report 11604246 (Version 1)
Quarter: 2015Q4

REPORT INFORMATION
  Report Type: Spontaneous
  Country: US (occurrence: US)
  Receive Date: 20151007
  Receipt Date: 20151007
  Transmission Date: 20160304
  Serious: No
  Sender: FDA-Public Use
  Company Number: US-BRISTOL-MYERS SQUIBB COMPANY-BMS-2015-067029

PATIENT
  Age: 51 Year
  Sex: Male

DRUGS (1)
  1. SPRYCEL [Suspect]
     Active Substance: DASATINIB
     Indication: CHRONIC MYELOID LEUKAEMIA
     Dosage: 100 MG, UNK
     Route: 048
     Dates: start: 20150924

REACTIONS (8)
  - Muscle spasms [Unknown]
  - Fatigue [Unknown]
  - Decreased appetite [Unknown]
  - Vomiting [Unknown]
  - Pruritus [Unknown]
  - Headache [Unknown]
  - Diarrhoea [Unknown]
  - Chest pain [Unknown]

NARRATIVE: CASE EVENT DATE: 20150929
